FAERS Safety Report 8442998-0 (Version None)
Quarter: 2012Q2

REPORT INFORMATION
  Report Type: 
  Country: None (occurrence: None)
  Receive Date: 20120615
  Receipt Date: 20120605
  Transmission Date: 20120825
  Serious: Yes (Hospitalization, Other)
  Sender: FDA-Public Use
  Company Number: US-ABBOTT-12P-163-0943208-00

PATIENT
  Sex: Female
  Weight: 75.818 kg

DRUGS (3)
  1. HUMIRA [Suspect]
     Dates: start: 20120501
  2. HUMIRA [Suspect]
     Dates: start: 20090101, end: 20100101
  3. HUMIRA [Suspect]
     Indication: PRODUCT USED FOR UNKNOWN INDICATION

REACTIONS (10)
  - CYSTITIS [None]
  - IMPAIRED HEALING [None]
  - UPPER LIMB FRACTURE [None]
  - STAPHYLOCOCCAL INFECTION [None]
  - FEMUR FRACTURE [None]
  - SEPTIC SHOCK [None]
  - FALL [None]
  - DEVICE RELATED SEPSIS [None]
  - RHEUMATOID ARTHRITIS [None]
  - SKIN ULCER [None]
